FAERS Safety Report 5999605-6 (Version None)
Quarter: 2008Q4

REPORT INFORMATION
  Report Type: 
  Country: None (occurrence: None)
  Receive Date: 20081211
  Receipt Date: 20081211
  Transmission Date: 20090506
  Serious: Yes (Life-Threatening)
  Sender: FDA-Public Use
  Company Number: None

PATIENT
  Sex: Female
  Weight: 58.0604 kg

DRUGS (6)
  1. ABILIFY [Suspect]
     Indication: ANXIETY
     Dosage: 5 MG/DAY ONCE DAILY P.O.
     Route: 048
     Dates: start: 20081112
  2. ABILIFY [Suspect]
     Indication: DEPRESSION
     Dosage: 5 MG/DAY ONCE DAILY P.O.
     Route: 048
     Dates: start: 20081112
  3. ABILIFY [Suspect]
     Indication: ANXIETY
     Dosage: 5 MG/DAY ONCE DAILY P.O.
     Route: 048
     Dates: start: 20081113
  4. ABILIFY [Suspect]
     Indication: DEPRESSION
     Dosage: 5 MG/DAY ONCE DAILY P.O.
     Route: 048
     Dates: start: 20081113
  5. ABILIFY [Suspect]
     Indication: ANXIETY
     Dosage: 5 MG/DAY ONCE DAILY P.O.
     Route: 048
     Dates: start: 20081114
  6. ABILIFY [Suspect]
     Indication: DEPRESSION
     Dosage: 5 MG/DAY ONCE DAILY P.O.
     Route: 048
     Dates: start: 20081114

REACTIONS (12)
  - AGGRESSION [None]
  - AGITATION [None]
  - ANGER [None]
  - CONDITION AGGRAVATED [None]
  - IMPULSIVE BEHAVIOUR [None]
  - INSOMNIA [None]
  - IRRITABILITY [None]
  - MANIA [None]
  - PANIC REACTION [None]
  - PERSONALITY CHANGE [None]
  - SUICIDAL IDEATION [None]
  - THINKING ABNORMAL [None]
